FAERS Safety Report 8163277-5 (Version None)
Quarter: 2012Q1

REPORT INFORMATION
  Report Type: 
  Country: None (occurrence: None)
  Receive Date: 20120224
  Receipt Date: 20120222
  Transmission Date: 20120608
  Serious: Yes (Other)
  Sender: FDA-Public Use
  Company Number: JP-PFIZER INC-2012047653

PATIENT
  Age: 65 Year
  Sex: Female

DRUGS (2)
  1. LYRICA [Suspect]
     Indication: CANCER PAIN
     Dosage: 300 MG DAILY
     Route: 048
     Dates: start: 20110723, end: 20120201
  2. AMOXICILLIN [Suspect]
     Dosage: UNK

REACTIONS (1)
  - ARRHYTHMIA [None]
